FAERS Safety Report 14461774 (Version 1)
Quarter: 2018Q1

REPORT INFORMATION
  Report Type: Spontaneous
  Country: US (occurrence: US)
  Receive Date: 20180130
  Receipt Date: 20180130
  Transmission Date: 20180509
  Serious: Yes (Life-Threatening, Hospitalization, Other)
  Sender: FDA-Public Use
  Company Number: US-MYLANLABS-2018M1006387

PATIENT
  Age: 58 Year
  Sex: Female

DRUGS (19)
  1. BISACODYL. [Concomitant]
     Active Substance: BISACODYL
     Indication: PRODUCT USED FOR UNKNOWN INDICATION
     Dosage: 5 MG DAILY
     Route: 048
  2. METOCLOPRAMIDE. [Concomitant]
     Active Substance: METOCLOPRAMIDE
     Indication: NAUSEA
     Dosage: 10 MG AT MEALS AND AT BEDTIME
     Route: 048
  3. PAROXETINE. [Concomitant]
     Active Substance: PAROXETINE
     Indication: ANXIETY DISORDER
     Dosage: 20 MG DAILY
     Route: 048
  4. MESNA. [Suspect]
     Active Substance: MESNA
     Dosage: 2500 MG/M2 OVER 12 HOURS ON DAY 5
     Route: 042
  5. ONDANSETRON [Concomitant]
     Active Substance: ONDANSETRON
     Indication: PRODUCT USED FOR UNKNOWN INDICATION
     Dosage: 8 MG, Q8H
     Route: 042
  6. METHYLENE BLUE. [Suspect]
     Active Substance: METHYLENE BLUE
     Indication: ENCEPHALOPATHY
     Route: 042
  7. LOSARTAN. [Concomitant]
     Active Substance: LOSARTAN
     Indication: PRODUCT USED FOR UNKNOWN INDICATION
     Dosage: 50 MG DAILY
     Route: 048
  8. OXYCODONE [Concomitant]
     Active Substance: OXYCODONE
     Indication: PAIN
     Dosage: 15 MG, UNK
     Route: 048
  9. DOCUSATE PLUS SENNA [Concomitant]
     Active Substance: DOCUSATE SODIUM\SENNOSIDES A AND B
     Indication: CONSTIPATION
     Dosage: 50/8.6 MG DAILY FOR CONSTIPATION
     Route: 048
  10. DEXAMETHASONE. [Concomitant]
     Active Substance: DEXAMETHASONE
     Indication: PRODUCT USED FOR UNKNOWN INDICATION
     Dosage: 18 MG DAILY
     Route: 048
  11. IFOSFAMIDE. [Suspect]
     Active Substance: IFOSFAMIDE
     Dosage: 2000 MG/M2/DAY FOR FOUR DAYS
     Route: 042
  12. MESNA. [Suspect]
     Active Substance: MESNA
     Indication: LEIOMYOSARCOMA RECURRENT
     Dosage: 2500 MG/M2 OVER 24 HOURS ON DAYS 1 THROUGH 4, THEN 2500 MG/M2 OVER 12 HOURS ON DAY 5
     Route: 042
  13. ADRIAMYCIN [Suspect]
     Active Substance: DOXORUBICIN HYDROCHLORIDE
     Indication: LEIOMYOSARCOMA RECURRENT
     Dosage: 25 MG/M2/DAY OVER 24 HOURS ON DAYS 1 TO 3
     Route: 042
  14. CLONIDINE. [Concomitant]
     Active Substance: CLONIDINE
     Indication: PRODUCT USED FOR UNKNOWN INDICATION
     Dosage: 0.2 MG, UNK
     Route: 048
  15. NIFEDIPINE. [Concomitant]
     Active Substance: NIFEDIPINE
     Indication: HYPERTENSION
     Dosage: 60 MG EVERY MORNING AND 90 MG EVERY EVENING
     Route: 048
  16. IFOSFAMIDE. [Suspect]
     Active Substance: IFOSFAMIDE
     Indication: LEIOMYOSARCOMA RECURRENT
     Dosage: 2500 MG/M2/DAY OVER 24 HOURS ON DAYS 1 THROUGH 4
     Route: 042
  17. THIAMINE. [Concomitant]
     Active Substance: THIAMINE
     Indication: PROPHYLAXIS
     Dosage: 100 MG DAILY
     Route: 048
  18. FLUCONAZOLE. [Concomitant]
     Active Substance: FLUCONAZOLE
     Indication: CANDIDA INFECTION
     Dosage: 200 MG DAILY
     Route: 048
  19. PAROXETINE. [Concomitant]
     Active Substance: PAROXETINE
     Indication: DEPRESSION

REACTIONS (5)
  - Vomiting [Unknown]
  - Encephalopathy [Recovered/Resolved]
  - Nausea [Unknown]
  - Febrile neutropenia [Unknown]
  - Serotonin syndrome [Recovered/Resolved]
